FAERS Safety Report 24762384 (Version 1)
Quarter: 2024Q4

REPORT INFORMATION
  Report Type: Spontaneous
  Country: US (occurrence: US)
  Receive Date: 20241221
  Receipt Date: 20241221
  Transmission Date: 20250114
  Serious: Yes (Death, Hospitalization, Other)
  Sender: ALEXION PHARMACEUTICALS
  Company Number: US-ASTRAZENECA-202412USA016419US

PATIENT
  Age: 57 Year

DRUGS (20)
  1. SEROQUEL [Suspect]
     Active Substance: QUETIAPINE FUMARATE
  2. SEROQUEL [Suspect]
     Active Substance: QUETIAPINE FUMARATE
     Route: 048
  3. SEROQUEL [Suspect]
     Active Substance: QUETIAPINE FUMARATE
  4. SEROQUEL [Suspect]
     Active Substance: QUETIAPINE FUMARATE
     Route: 048
  5. INSULIN NOS [Suspect]
     Active Substance: INSULIN NOS
     Route: 048
  6. INSULIN NOS [Suspect]
     Active Substance: INSULIN NOS
  7. AMITRIPTYLINE [Suspect]
     Active Substance: AMITRIPTYLINE
     Route: 048
  8. AMITRIPTYLINE [Suspect]
     Active Substance: AMITRIPTYLINE
  9. ARIPIPRAZOLE [Suspect]
     Active Substance: ARIPIPRAZOLE
     Route: 048
  10. ARIPIPRAZOLE [Suspect]
     Active Substance: ARIPIPRAZOLE
  11. GABAPENTIN [Suspect]
     Active Substance: GABAPENTIN
     Route: 048
  12. GABAPENTIN [Suspect]
     Active Substance: GABAPENTIN
  13. ROPINIROLE [Suspect]
     Active Substance: ROPINIROLE
     Route: 048
  14. ROPINIROLE [Suspect]
     Active Substance: ROPINIROLE
  15. SUMATRIPTAN [Suspect]
     Active Substance: SUMATRIPTAN
     Route: 048
  16. SUMATRIPTAN [Suspect]
     Active Substance: SUMATRIPTAN
  17. VENLAFAXINE [Suspect]
     Active Substance: VENLAFAXINE HYDROCHLORIDE
     Route: 048
  18. VENLAFAXINE [Suspect]
     Active Substance: VENLAFAXINE HYDROCHLORIDE
  19. CYCLOBENZAPRINE [Suspect]
     Active Substance: CYCLOBENZAPRINE
     Route: 048
  20. CYCLOBENZAPRINE [Suspect]
     Active Substance: CYCLOBENZAPRINE

REACTIONS (2)
  - Toxicity to various agents [Fatal]
  - Completed suicide [Fatal]
